FAERS Safety Report 5842959-1 (Version None)
Quarter: 2008Q3

REPORT INFORMATION
  Report Type: 
  Country: None (occurrence: None)
  Receive Date: 20080811
  Receipt Date: 20080723
  Transmission Date: 20090109
  Serious: Yes (Death, Hospitalization)
  Sender: FDA-Public Use
  Company Number: POMP-1000247

PATIENT
  Age: 10 Month
  Sex: Male
  Weight: 5.5 kg

DRUGS (6)
  1. MYOZYME [Suspect]
     Indication: GLYCOGEN STORAGE DISEASE TYPE II
     Dosage: 100 MG, Q2W, INTRAVENOUS
     Route: 042
     Dates: start: 20080307, end: 20080707
  2. VENTOLIN (SALBUTAMOL SULFATE) [Concomitant]
  3. LASIX [Concomitant]
  4. ALDACTONE [Concomitant]
  5. CAPTOPRIL [Concomitant]
  6. DOPAMINE HCL [Concomitant]

REACTIONS (8)
  - BODY TEMPERATURE INCREASED [None]
  - CARDIO-RESPIRATORY ARREST [None]
  - COMA [None]
  - MOVEMENT DISORDER [None]
  - PNEUMONIA [None]
  - RESPIRATORY DISTRESS [None]
  - TACHYPNOEA [None]
  - WHEEZING [None]
